FAERS Safety Report 15676698 (Version 3)
Quarter: 2018Q4

REPORT INFORMATION
  Report Type: Report from Study
  Country: CN (occurrence: CN)
  Receive Date: 20181130
  Receipt Date: 20181219
  Transmission Date: 20190205
  Serious: Yes (Life-Threatening, Hospitalization)
  Sender: FDA-Public Use
  Company Number: CN-ROCHE-2220244

PATIENT
  Age: 44 Year
  Sex: Female
  Weight: 46 kg

DRUGS (46)
  1. OBINUTUZUMAB. [Suspect]
     Active Substance: OBINUTUZUMAB
     Indication: NON-HODGKIN^S LYMPHOMA
     Dosage: ADMINISTERED ON DAY 1, 8, AND 15 OF CYCLE 1 AND THEN ON DAY 1 OF EACH SUBSEQUENT CYCLE.?MOST RECENT
     Route: 042
     Dates: start: 20130916
  2. FILGRASTIM [Concomitant]
     Active Substance: FILGRASTIM
     Route: 065
     Dates: start: 20131223, end: 20131223
  3. COMPOUND PARACETAMOL [Concomitant]
     Indication: PAIN
     Route: 065
     Dates: start: 20140115, end: 20140115
  4. COMPOUND PARACETAMOL [Concomitant]
     Route: 065
     Dates: start: 20130930, end: 20130930
  5. RINGER^S INJECTION, LACTATED/SODIUM CHLORIDE [Concomitant]
     Route: 065
     Dates: start: 20130912, end: 20130912
  6. DOXORUBICIN [Suspect]
     Active Substance: DOXORUBICIN
     Indication: NON-HODGKIN^S LYMPHOMA
     Dosage: ON DAY 1 OF EACH CYCLE.?MOST RECENT DOSE TAKEN PRIOR TO SAE MYELOSUPPRESSION EPISODE 1: 17/SEP/2013.
     Route: 042
     Dates: start: 20130917
  7. OMEPRAZOLE. [Concomitant]
     Active Substance: OMEPRAZOLE
     Route: 065
     Dates: start: 20131209, end: 20131217
  8. PALONOSETRON HYDROCHLORIDE. [Concomitant]
     Active Substance: PALONOSETRON HYDROCHLORIDE
     Route: 065
     Dates: start: 20131224, end: 20131224
  9. MYRTOL [Concomitant]
     Active Substance: HERBALS
     Indication: PRODUCTIVE COUGH
     Route: 065
     Dates: start: 20131217, end: 20131221
  10. CEFODIZIME [Concomitant]
     Active Substance: CEFODIZIME SODIUM
     Indication: INTERSTITIAL LUNG DISEASE
     Route: 065
     Dates: start: 20131202, end: 20131203
  11. OMEPRAZOLE. [Concomitant]
     Active Substance: OMEPRAZOLE
     Route: 065
     Dates: start: 20140116, end: 20140120
  12. WATERMELON FROST [Concomitant]
     Route: 065
     Dates: start: 20130911, end: 20130911
  13. GUI LIN WATERMELON FROST [Concomitant]
     Indication: ORAL INFECTION
     Route: 065
     Dates: start: 20130920, end: 20130920
  14. AZITHROMYCIN ANHYDROUS. [Concomitant]
     Active Substance: AZITHROMYCIN ANHYDROUS
     Route: 065
     Dates: start: 20131209, end: 20131217
  15. THYMOPENTIN [Concomitant]
     Active Substance: THYMOPENTIN
     Indication: INTERSTITIAL LUNG DISEASE
     Route: 065
     Dates: start: 20131205, end: 20131208
  16. FILGRASTIM [Concomitant]
     Active Substance: FILGRASTIM
     Route: 065
     Dates: start: 201311, end: 201311
  17. FILGRASTIM [Concomitant]
     Active Substance: FILGRASTIM
     Route: 065
     Dates: start: 20130924, end: 20130927
  18. COMPOUND PARACETAMOL [Concomitant]
     Route: 065
     Dates: start: 20130916, end: 20130916
  19. STILNOX [Concomitant]
     Active Substance: ZOLPIDEM TARTRATE
     Route: 065
     Dates: start: 20130909, end: 20130911
  20. ACETAMINOPHEN/OXYCODONE [Concomitant]
     Active Substance: ACETAMINOPHEN\OXYCODONE HYDROCHLORIDE
     Indication: PAIN
     Route: 065
     Dates: start: 20130926, end: 20130926
  21. LEVOFLOXACIN. [Concomitant]
     Active Substance: LEVOFLOXACIN
     Indication: INFECTION PROPHYLAXIS
     Route: 065
     Dates: start: 20130926, end: 20130926
  22. CYCLOPHOSPHAMIDE. [Suspect]
     Active Substance: CYCLOPHOSPHAMIDE
     Indication: NON-HODGKIN^S LYMPHOMA
     Dosage: ON DAY 1 OF EACH CYCLE.?MOST RECENT DOSE TAKEN PRIOR TO SAE MYELOSUPPRESSION EPISODE 1: 17/SEP/2013.
     Route: 042
     Dates: start: 20130917
  23. FILGRASTIM [Concomitant]
     Active Substance: FILGRASTIM
     Route: 065
     Dates: start: 20140113, end: 20140113
  24. PROMETHAZINE HYDROCHLORIDE. [Concomitant]
     Active Substance: PROMETHAZINE HYDROCHLORIDE
     Route: 065
     Dates: start: 20130930, end: 20130930
  25. VINCRISTINE [Suspect]
     Active Substance: VINCRISTINE
     Indication: NON-HODGKIN^S LYMPHOMA
     Dosage: INTRAVENOUS PUSH; MAXIMUM 2 MG?ON DAY 1 OF EACH CYCLE.?MOST RECENT DOSE TAKEN PRIOR TO SAE MYELOSUPP
     Route: 042
     Dates: start: 20130917
  26. GLYCERINE [Concomitant]
     Active Substance: GLYCERIN
     Route: 065
     Dates: start: 20130922, end: 20130922
  27. FILGRASTIM [Concomitant]
     Active Substance: FILGRASTIM
     Indication: WHITE BLOOD CELL COUNT INCREASED
     Route: 065
     Dates: start: 20131227, end: 20131227
  28. FILGRASTIM [Concomitant]
     Active Substance: FILGRASTIM
     Indication: WHITE BLOOD CELL COUNT INCREASED
     Route: 065
     Dates: start: 20140113, end: 20140115
  29. COMPOUND PARACETAMOL [Concomitant]
     Route: 065
     Dates: start: 20131223, end: 20131223
  30. POLYENE PHOSPHATIDYLCHOLINE [Concomitant]
     Active Substance: PHOSPHOLIPID
     Route: 065
     Dates: start: 20130922, end: 20130922
  31. ACYCLOVIR. [Concomitant]
     Active Substance: ACYCLOVIR
     Indication: INTERSTITIAL LUNG DISEASE
     Route: 065
     Dates: start: 20131202, end: 20131208
  32. AMBROXOL HYDROCHLORIDE [Concomitant]
     Active Substance: AMBROXOL HYDROCHLORIDE
     Indication: INTERSTITIAL LUNG DISEASE
     Route: 065
     Dates: start: 20131205, end: 20131208
  33. PROMETHAZINE HYDROCHLORIDE. [Concomitant]
     Active Substance: PROMETHAZINE HYDROCHLORIDE
     Indication: SEDATION
     Dosage: NEEDLE
     Route: 065
     Dates: start: 20140115, end: 20140115
  34. PALONOSETRON HYDROCHLORIDE. [Concomitant]
     Active Substance: PALONOSETRON HYDROCHLORIDE
     Indication: PROPHYLAXIS OF NAUSEA AND VOMITING
     Route: 065
     Dates: start: 20140116, end: 20140116
  35. COMPOUND GLYCYRRHIZIN (AMINOACETIC ACID/CYSTEINE HYDROCHLORIDE/GLYCYRR [Concomitant]
     Route: 065
     Dates: start: 20130922, end: 20130925
  36. BIAPENEM [Concomitant]
     Active Substance: BIAPENEM
     Indication: INTERSTITIAL LUNG DISEASE
     Route: 065
     Dates: start: 20131203, end: 20131208
  37. OMEPRAZOLE. [Concomitant]
     Active Substance: OMEPRAZOLE
     Route: 065
     Dates: start: 20131218, end: 20140106
  38. OMEPRAZOLE. [Concomitant]
     Active Substance: OMEPRAZOLE
     Route: 065
     Dates: start: 20130917, end: 20130921
  39. GLYCERINE [Concomitant]
     Active Substance: GLYCERIN
     Dosage: ENEMA
     Route: 065
     Dates: start: 20131227, end: 20131227
  40. PROMETHAZINE HYDROCHLORIDE. [Concomitant]
     Active Substance: PROMETHAZINE HYDROCHLORIDE
     Route: 065
     Dates: start: 20130916, end: 20130916
  41. PALONOSETRON HYDROCHLORIDE. [Concomitant]
     Active Substance: PALONOSETRON HYDROCHLORIDE
     Route: 065
     Dates: start: 20130917, end: 20130917
  42. LANSOPRAZOLE. [Concomitant]
     Active Substance: LANSOPRAZOLE
     Indication: PROPHYLAXIS OF NAUSEA AND VOMITING
     Route: 065
     Dates: start: 20140116, end: 20140116
  43. DUPHALAC (CHINA) [Concomitant]
     Route: 065
     Dates: start: 20130920, end: 20130920
  44. INDOMETACIN [Concomitant]
     Active Substance: INDOMETHACIN
     Indication: SEDATION
     Route: 065
     Dates: start: 20131209, end: 20131209
  45. BUFFERIN COLD (UNK INGREDIENTS) [Concomitant]
     Route: 065
     Dates: start: 20131219, end: 20131224
  46. VANCOMYCIN [Concomitant]
     Active Substance: VANCOMYCIN
     Indication: INTERSTITIAL LUNG DISEASE
     Route: 065
     Dates: start: 20131207, end: 20131208

REACTIONS (3)
  - Neutropenia [Recovered/Resolved]
  - Leukopenia [Recovered/Resolved]
  - Bone marrow failure [Recovered/Resolved]

NARRATIVE: CASE EVENT DATE: 20130924
